FAERS Safety Report 13018977 (Version 2)
Quarter: 2016Q4

REPORT INFORMATION
  Report Type: Spontaneous
  Country: PT (occurrence: PT)
  Receive Date: 20161212
  Receipt Date: 20161219
  Transmission Date: 20170207
  Serious: Yes (Other)
  Sender: FDA-Public Use
  Company Number: PT-PFIZER INC-2016569902

PATIENT
  Age: 68 Year
  Sex: Male
  Weight: 75 kg

DRUGS (9)
  1. ALPRAZOLAM MYLAN [Concomitant]
     Active Substance: ALPRAZOLAM
     Indication: ANXIETY
     Dosage: 0.5 MG, UNK
     Route: 048
  2. TRIATEC [Concomitant]
     Active Substance: RAMIPRIL
     Dosage: 5 MG, DAILY
     Route: 048
     Dates: start: 201605
  3. CARVEDILOL. [Concomitant]
     Active Substance: CARVEDILOL
     Dosage: 12.5 MG (HALF 25MG TABLET), 2X/DAY
     Route: 048
     Dates: start: 201605
  4. ASPIRINA GR [Concomitant]
     Indication: ISCHAEMIC HEART DISEASE PROPHYLAXIS
     Dosage: 100 MG, 1X/DAY
     Route: 048
     Dates: start: 201605
  5. SERENAL [Concomitant]
     Active Substance: OXAZOLAM
     Dosage: 15 MG, UNK
  6. AZITHROMYCINA GENERIS [Suspect]
     Active Substance: AZITHROMYCIN
     Indication: RESPIRATORY TRACT INFECTION
     Dosage: 500 MG, 1X/DAY
     Route: 048
     Dates: start: 20161206, end: 20161206
  7. PLAVIX [Concomitant]
     Active Substance: CLOPIDOGREL BISULFATE
     Indication: ISCHAEMIC HEART DISEASE PROPHYLAXIS
     Dosage: 25 MG, 1X/DAY
     Route: 048
     Dates: start: 201605
  8. AZITHROMYCINA GENERIS [Suspect]
     Active Substance: AZITHROMYCIN
     Indication: PHARYNGITIS
  9. ATOZEC [Concomitant]
     Dosage: [ATORVASTATIN 20MG]/[EZETIMIBE 10MG], DAILY
     Route: 048
     Dates: start: 201605

REACTIONS (6)
  - Nausea [Recovered/Resolved]
  - Head injury [Recovered/Resolved]
  - Fall [Recovered/Resolved]
  - Loss of consciousness [Recovered/Resolved]
  - Vomiting [Recovered/Resolved]
  - Syncope [Recovered/Resolved]

NARRATIVE: CASE EVENT DATE: 20161206
